FAERS Safety Report 23687438 (Version 2)
Quarter: 2024Q2

REPORT INFORMATION
  Report Type: Spontaneous
  Country: IN (occurrence: IN)
  Receive Date: 20240329
  Receipt Date: 20240429
  Transmission Date: 20240716
  Serious: Yes (Death, Other)
  Sender: FDA-Public Use
  Company Number: IN-PFIZER INC-PV202400041592

PATIENT
  Age: 54 Year
  Sex: Female

DRUGS (1)
  1. LORLATINIB [Suspect]
     Active Substance: LORLATINIB
     Indication: Lung adenocarcinoma
     Dosage: 100 MG, 1X/DAY
     Route: 048
     Dates: start: 202402

REACTIONS (5)
  - Cardiopulmonary failure [Fatal]
  - Urosepsis [Fatal]
  - Diabetic ketoacidosis [Unknown]
  - Asthenia [Unknown]
  - Dyslipidaemia [Unknown]
